FAERS Safety Report 12441757 (Version 1)
Quarter: 2016Q2

REPORT INFORMATION
  Report Type: Spontaneous
  Country: US (occurrence: None)
  Receive Date: 20160606
  Receipt Date: 20160606
  Transmission Date: 20160815
  Serious: Yes (Hospitalization)
  Sender: FDA-Public Use
  Company Number: None

PATIENT
  Age: 60 Year
  Sex: Male
  Weight: 68.2 kg

DRUGS (2)
  1. DASATINIB 100 MG [Suspect]
     Active Substance: DASATINIB
     Indication: PROSTATE CANCER
     Dosage: DAILY ONCE Q/28DAYS PO
     Route: 048
     Dates: start: 20150505, end: 20151228
  2. ABIRATERONE 1000 MG [Suspect]
     Active Substance: ABIRATERONE
     Indication: PROSTATE CANCER
     Dosage: DIALY ONCE Q/28DAY PO
     Route: 048
     Dates: start: 20150505, end: 20151228

REACTIONS (8)
  - Hypophosphataemia [None]
  - Hypocalcaemia [None]
  - Abdominal pain [None]
  - Pneumonia [None]
  - Hypokalaemia [None]
  - Lung infection [None]
  - Confusional state [None]
  - Pyrexia [None]

NARRATIVE: CASE EVENT DATE: 20151228
